FAERS Safety Report 6710404-X (Version None)
Quarter: 2010Q2

REPORT INFORMATION
  Report Type: 
  Country: None (occurrence: None)
  Receive Date: 20100430
  Receipt Date: 20100428
  Transmission Date: 20101027
  Serious: Yes (Other)
  Sender: FDA-Public Use
  Company Number: 009530

PATIENT
  Age: 60 Year
  Sex: Male

DRUGS (2)
  1. BUSULFEX [Suspect]
     Indication: STEM CELL TRANSPLANT
     Dosage: ORAL
     Route: 048
  2. CYCLOPHOSPHAMIDE [Concomitant]

REACTIONS (3)
  - CHRONIC GRAFT VERSUS HOST DISEASE [None]
  - PANCREATIC ATROPHY [None]
  - SICCA SYNDROME [None]
